FAERS Safety Report 25998907 (Version 2)
Quarter: 2025Q4

REPORT INFORMATION
  Report Type: Report from Study
  Country: SG (occurrence: SG)
  Receive Date: 20251105
  Receipt Date: 20251201
  Transmission Date: 20260117
  Serious: No
  Sender: GLAXOSMITHKLINE
  Company Number: SG-GSK-SG2025GSK140511

PATIENT
  Age: 76 Year
  Sex: Male
  Weight: 70.7 kg

DRUGS (12)
  1. BELANTAMAB MAFODOTIN [Suspect]
     Active Substance: BELANTAMAB MAFODOTIN
     Indication: Plasma cell myeloma
     Dosage: 2.5 MG/KG (CYCLE 1)
  2. BELANTAMAB MAFODOTIN [Suspect]
     Active Substance: BELANTAMAB MAFODOTIN
     Dosage: 1.9 MG/KG (CYCLE 2)
  3. BELANTAMAB MAFODOTIN [Suspect]
     Active Substance: BELANTAMAB MAFODOTIN
     Dosage: CYCLE 3
  4. BELANTAMAB MAFODOTIN [Suspect]
     Active Substance: BELANTAMAB MAFODOTIN
     Dosage: (CYCLE 4)
  5. BORTEZOMIB [Suspect]
     Active Substance: BORTEZOMIB
     Indication: Plasma cell myeloma
     Dosage: 1.3 MG/M2 (ON DAY 1,4, 8, 11) (CYCLE 1)
  6. BORTEZOMIB [Suspect]
     Active Substance: BORTEZOMIB
     Dosage: 1.3 DF, WE (CYCLE 2)
  7. BORTEZOMIB [Suspect]
     Active Substance: BORTEZOMIB
     Dosage: (CYCLE 13)
  8. BORTEZOMIB [Suspect]
     Active Substance: BORTEZOMIB
     Dosage: (CYCLE 4)
  9. DEXAMETHASONE [Suspect]
     Active Substance: DEXAMETHASONE
     Indication: Plasma cell myeloma
     Dosage: 20 MG (ON DAY 1,4, 8, 11) (CYCLE 1)
  10. DEXAMETHASONE [Suspect]
     Active Substance: DEXAMETHASONE
     Dosage: (CYCLE 2)
  11. DEXAMETHASONE [Suspect]
     Active Substance: DEXAMETHASONE
     Dosage: (CYCLE 3)
  12. DEXAMETHASONE [Suspect]
     Active Substance: DEXAMETHASONE
     Dosage: (CYCLE 4)

REACTIONS (1)
  - Corneal epithelial microcysts [Not Recovered/Not Resolved]

NARRATIVE: CASE EVENT DATE: 20251023
